FAERS Safety Report 4449356-4 (Version None)
Quarter: 2004Q3

REPORT INFORMATION
  Report Type: 
  Country: None (occurrence: None)
  Receive Date: 20040910
  Receipt Date: 20040826
  Transmission Date: 20050211
  Serious: Yes (Hospitalization)
  Sender: FDA-Public Use
  Company Number: 04P-163-0271607-00

PATIENT
  Sex: Male

DRUGS (10)
  1. HUMIRA [Suspect]
     Indication: RHEUMATOID ARTHRITIS
     Dosage: 40 MG, 1 IN 2 WK, SUBCUTANEOUS
     Route: 058
     Dates: start: 20040601, end: 20040701
  2. METHOTREXATE [Concomitant]
  3. METRONIDAZOLE [Concomitant]
  4. MESALAMINE [Concomitant]
  5. CLARINEX [Concomitant]
  6. RANITIDINE HYDROCHLORIDE [Concomitant]
  7. SODIUM PHOSPHATE [Concomitant]
  8. ALLOPURINOL [Concomitant]
  9. METHADONE HCL [Concomitant]
  10. HYDROMORPHONE HYDROCHLORIDE [Concomitant]

REACTIONS (6)
  - ATELECTASIS [None]
  - LUNG INJURY [None]
  - PNEUMONIA [None]
  - RASH [None]
  - RIB FRACTURE [None]
  - ROAD TRAFFIC ACCIDENT [None]
